FAERS Safety Report 15783507 (Version 1)
Quarter: 2019Q1

REPORT INFORMATION
  Report Type: Spontaneous
  Country: GB (occurrence: GB)
  Receive Date: 20190102
  Receipt Date: 20190102
  Transmission Date: 20190417
  Serious: Yes (Other)
  Sender: FDA-Public Use
  Company Number: GB-MYLANLABS-2018M1097251

PATIENT
  Age: 55 Year
  Sex: Female

DRUGS (2)
  1. STELAZINE [Concomitant]
     Active Substance: TRIFLUOPERAZINE HYDROCHLORIDE
     Indication: SCHIZOPHRENIA
     Dosage: 40 MG, QD
     Route: 048
  2. ARIPIPRAZOLE. [Suspect]
     Active Substance: ARIPIPRAZOLE
     Indication: SCHIZOPHRENIA
     Dosage: INC TO 15 MG/DAY IN MID-MARCH/THEN 20 MG/DAY IN MID-APRIL/DOSE REDUCED TO 15 MG AGAIN ON 27-MAY-05.
     Route: 048
     Dates: start: 200502

REACTIONS (6)
  - Agitation [Recovering/Resolving]
  - Tearfulness [Recovering/Resolving]
  - Libido increased [Recovered/Resolved]
  - Psychomotor hyperactivity [Recovered/Resolved]
  - Psychotic symptom [Recovered/Resolved]
  - Insomnia [Recovered/Resolved]

NARRATIVE: CASE EVENT DATE: 200504
